FAERS Safety Report 18650574 (Version 2)
Quarter: 2021Q1

REPORT INFORMATION
  Report Type: Report from Study
  Country: US (occurrence: US)
  Receive Date: 20201223
  Receipt Date: 20210106
  Transmission Date: 20210419
  Serious: Yes (Hospitalization)
  Sender: FDA-Public Use
  Company Number: US-EMD SERONO-9208336

PATIENT
  Age: 64 Year
  Sex: Female

DRUGS (1)
  1. REBIF [Suspect]
     Active Substance: INTERFERON BETA-1A
     Indication: PRODUCT USED FOR UNKNOWN INDICATION
     Route: 058
     Dates: start: 20170219

REACTIONS (5)
  - Asthenia [Unknown]
  - Product dose omission issue [Recovered/Resolved]
  - Colitis [Unknown]
  - Atypical pneumonia [Unknown]
  - Illness [Unknown]

NARRATIVE: CASE EVENT DATE: 2020
